FAERS Safety Report 5158697-7 (Version None)
Quarter: 2006Q4

REPORT INFORMATION
  Report Type: 
  Country: None (occurrence: None)
  Receive Date: 20061128
  Receipt Date: 20061115
  Transmission Date: 20070319
  Serious: Yes (Other)
  Sender: FDA-Public Use
  Company Number: PHBS2006US17885

PATIENT
  Age: 62 Year
  Sex: Male

DRUGS (1)
  1. ZOLEDRONATE [Suspect]
     Indication: METASTASES TO BONE
     Route: 042

REACTIONS (17)
  - ALVEOLOPLASTY [None]
  - BACTERIAL INFECTION [None]
  - BONE FRAGMENTATION [None]
  - BONE OPERATION [None]
  - DENTAL ALVEOLAR ANOMALY [None]
  - DENTAL PROSTHESIS PLACEMENT [None]
  - EXCESSIVE GRANULATION TISSUE [None]
  - FISTULA [None]
  - GINGIVITIS [None]
  - IMPAIRED HEALING [None]
  - MOBILITY DECREASED [None]
  - OSTEONECROSIS [None]
  - PERIODONTITIS [None]
  - PRIMARY SEQUESTRUM [None]
  - PURULENT DISCHARGE [None]
  - RESORPTION BONE INCREASED [None]
  - TOOTH EXTRACTION [None]
